FAERS Safety Report 5573587-3 (Version None)
Quarter: 2007Q4

REPORT INFORMATION
  Report Type: 
  Country: None (occurrence: None)
  Receive Date: 20071220
  Receipt Date: 20071213
  Transmission Date: 20080405
  Serious: Yes (Death, Hospitalization)
  Sender: FDA-Public Use
  Company Number: 163-C5013-05090126

PATIENT
  Age: 68 Year
  Sex: Female
  Weight: 85.9 kg

DRUGS (13)
  1. CC-5013 (LENALIDOMIDE) (CAPSULES) [Suspect]
     Indication: MULTIPLE MYELOMA
     Dosage: 25 MG, QD, DAYS 1-21, Q28D, ORAL
     Route: 048
     Dates: start: 20050617, end: 20050901
  2. DEXAMETHASONE (DEXAMETHSONE) [Suspect]
     Indication: MULTIPLE MYELOMA
     Dosage: 40 MG, QD, DAYS 1-4, 9-12, 17-20, Q28D, ORAL
     Route: 048
     Dates: start: 20050617, end: 20050831
  3. MORPHINE [Concomitant]
  4. MS CONTIN [Concomitant]
  5. LEVAQUIN [Concomitant]
  6. ELAVIL [Concomitant]
  7. LASIX [Concomitant]
  8. K-DUR 10 [Concomitant]
  9. DOCUSATE SODIUM (DOCUSATE SODIUM) [Concomitant]
  10. COLACE (DOCUSATE SODIUM) [Concomitant]
  11. ASPIRIN [Concomitant]
  12. MULTIVITAMIN [Concomitant]
  13. PREVACID [Concomitant]

REACTIONS (10)
  - ASPIRATION [None]
  - BACK PAIN [None]
  - BLOOD POTASSIUM DECREASED [None]
  - CARDIO-RESPIRATORY ARREST [None]
  - DEEP VEIN THROMBOSIS [None]
  - HYPONATRAEMIA [None]
  - HYPOXIA [None]
  - INTERTRIGO [None]
  - NOSOCOMIAL INFECTION [None]
  - PNEUMONIA [None]
